FAERS Safety Report 7462594-1 (Version None)
Quarter: 2011Q2

REPORT INFORMATION
  Report Type: 
  Country: None (occurrence: None)
  Receive Date: 20110506
  Receipt Date: 20110427
  Transmission Date: 20111010
  Serious: Yes (Hospitalization)
  Sender: FDA-Public Use
  Company Number: US-PFIZER INC-2011094885

PATIENT
  Age: 55 Year
  Sex: Male

DRUGS (4)
  1. ARIPIPRAZOLE [Interacting]
     Indication: SCHIZOPHRENIA, PARANOID TYPE
     Dosage: 5 MG/DAY
  2. LITHIUM [Concomitant]
     Dosage: 1200 MG/DAY
  3. SERTRALINE HYDROCHLORIDE [Suspect]
     Dosage: 50 MG/DAY
  4. FLUPHENAZINE DECANOATE [Interacting]
     Indication: SCHIZOPHRENIA, PARANOID TYPE
     Dosage: 62.5 MG, EVERY 2 WEEKS
     Route: 030

REACTIONS (4)
  - DRUG INTERACTION [None]
  - EXTRAPYRAMIDAL DISORDER [None]
  - PARKINSONISM [None]
  - TARDIVE DYSKINESIA [None]
